FAERS Safety Report 8270068-3 (Version None)
Quarter: 2012Q2

REPORT INFORMATION
  Report Type: 
  Country: None (occurrence: None)
  Receive Date: 20120410
  Receipt Date: 20120403
  Transmission Date: 20120825
  Serious: Yes (Other)
  Sender: FDA-Public Use
  Company Number: US-JNJFOC-20120402687

PATIENT

DRUGS (3)
  1. CLADRIBINE [Suspect]
     Indication: B-CELL LYMPHOMA
     Route: 042
  2. VORINOSTAT [Suspect]
     Indication: B-CELL LYMPHOMA
     Route: 065
  3. RITUXIMAB [Suspect]
     Indication: B-CELL LYMPHOMA
     Dosage: FOR 4 WEEKS
     Route: 042

REACTIONS (1)
  - EMBOLISM [None]
